FAERS Safety Report 24138499 (Version 1)
Quarter: 2024Q3

REPORT INFORMATION
  Report Type: Report from Study
  Country: CN (occurrence: None)
  Receive Date: 20240725
  Receipt Date: 20240725
  Transmission Date: 20241017
  Serious: Yes (Death, Hospitalization, Other)
  Sender: ASTRAZENECA
  Company Number: 2020SE63791

PATIENT
  Age: 23718 Day
  Sex: Female

DRUGS (1)
  1. TAGRISSO [Suspect]
     Active Substance: OSIMERTINIB
     Indication: Non-small cell lung cancer
     Dosage: ONE TABLET A DAY, ONCE A DAY. TAKING TAGRISSO AT EVENING, AROUND AT 8:00PM.
     Route: 048
     Dates: start: 20200207

REACTIONS (3)
  - Abdominal pain [Fatal]
  - Fatigue [Not Recovered/Not Resolved]
  - Abdominal discomfort [Not Recovered/Not Resolved]

NARRATIVE: CASE EVENT DATE: 20200502
